FAERS Safety Report 7757064-7 (Version None)
Quarter: 2011Q3

REPORT INFORMATION
  Report Type: 
  Country: None (occurrence: None)
  Receive Date: 20110916
  Receipt Date: 20110908
  Transmission Date: 20111222
  Serious: Yes (Other)
  Sender: FDA-Public Use
  Company Number: US-BAYER-2011-020021

PATIENT
  Age: 29 Year
  Sex: Female
  Weight: 98 kg

DRUGS (8)
  1. ALBUTEROL [Concomitant]
  2. YASMIN [Suspect]
     Dosage: UNK
     Dates: start: 20061209, end: 20070101
  3. DROSPIRENONE AND ETHINYL ESTRADIOL [Suspect]
     Dosage: UNK
     Route: 048
     Dates: start: 20100101
  4. YASMIN [Suspect]
     Dosage: UNK
     Route: 048
     Dates: start: 20050602, end: 20051001
  5. DROSPIRENONE AND ETHINYL ESTRADIOL [Suspect]
     Dosage: UNK
     Dates: start: 20090105, end: 20091201
  6. IBUPROFEN [Concomitant]
  7. YASMIN [Suspect]
     Dosage: UNK
     Dates: start: 20070322, end: 20070401
  8. YASMIN [Suspect]
     Dosage: UNK
     Dates: start: 20080317, end: 20080401

REACTIONS (4)
  - PAIN [None]
  - CHOLECYSTECTOMY [None]
  - CHOLELITHIASIS [None]
  - INJURY [None]
